FAERS Safety Report 6380782-2 (Version None)
Quarter: 2009Q3

REPORT INFORMATION
  Report Type: 
  Country: None (occurrence: None)
  Receive Date: 20090924
  Receipt Date: 20090909
  Transmission Date: 20100115
  Serious: Yes (Other)
  Sender: FDA-Public Use
  Company Number: 001722

PATIENT

DRUGS (1)
  1. PROSTANDIN /00501501/ (PROSTANDIN 20) [Suspect]
     Indication: PATENT DUCTUS ARTERIOSUS
     Dosage: (INTRAVENOUS DRIP)
     Route: 041

REACTIONS (2)
  - CARDIAC FAILURE [None]
  - CONDITION AGGRAVATED [None]
